FAERS Safety Report 6604476-0 (Version None)
Quarter: 2010Q1

REPORT INFORMATION
  Report Type: 
  Country: None (occurrence: None)
  Receive Date: 20100226
  Receipt Date: 20091026
  Transmission Date: 20100710
  Serious: No
  Sender: FDA-Public Use
  Company Number: A0813395A

PATIENT
  Age: 24 Year
  Sex: Male

DRUGS (2)
  1. LAMICTAL CD [Suspect]
     Indication: DEPRESSION
     Dosage: 100MG THREE TIMES PER DAY
     Route: 048
     Dates: start: 20070101
  2. KLONOPIN [Concomitant]

REACTIONS (4)
  - BLISTER [None]
  - FOLLICULITIS [None]
  - RASH VESICULAR [None]
  - STAPHYLOCOCCAL INFECTION [None]
